FAERS Safety Report 7135759-6 (Version None)
Quarter: 2010Q4

REPORT INFORMATION
  Report Type: 
  Country: None (occurrence: None)
  Receive Date: 20101203
  Receipt Date: 20101126
  Transmission Date: 20110411
  Serious: Yes (Other)
  Sender: FDA-Public Use
  Company Number: GB-PFIZER INC-2010135134

PATIENT
  Age: 66 Year
  Sex: Male

DRUGS (2)
  1. NEURONTIN [Suspect]
     Indication: NEURALGIA
     Dosage: 300 MG, 2X/DAY
     Route: 048
  2. NEURONTIN [Suspect]
     Indication: PAIN

REACTIONS (5)
  - AGGRESSION [None]
  - CONFUSIONAL STATE [None]
  - HALLUCINATION [None]
  - PARANOIA [None]
  - PSYCHOTIC DISORDER [None]
